FAERS Safety Report 4805598-7 (Version None)
Quarter: 2005Q4

REPORT INFORMATION
  Report Type: 
  Country: None (occurrence: None)
  Receive Date: 20051018
  Receipt Date: 20051010
  Transmission Date: 20060501
  Serious: Yes (Hospitalization, Disabling)
  Sender: FDA-Public Use
  Company Number: 163-20785-05100129

PATIENT
  Age: 43 Year
  Sex: Male

DRUGS (3)
  1. THALOMID [Suspect]
     Indication: MULTIPLE MYELOMA
     Dosage: 100-400MG, DAILY, ORAL
     Route: 048
     Dates: start: 20040621, end: 20050901
  2. VELCADE [Suspect]
  3. DEXAMETHASONE [Concomitant]

REACTIONS (6)
  - DEMYELINATION [None]
  - DIPLEGIA [None]
  - MALIGNANT NEOPLASM PROGRESSION [None]
  - MYELOMA RECURRENCE [None]
  - NEUROPATHY PERIPHERAL [None]
  - PANCYTOPENIA [None]
